FAERS Safety Report 25017721 (Version 2)
Quarter: 2025Q1

REPORT INFORMATION
  Report Type: Spontaneous
  Country: SK (occurrence: SK)
  Receive Date: 20250227
  Receipt Date: 20250308
  Transmission Date: 20250409
  Serious: Yes (Hospitalization, Other)
  Sender: AUROBINDO
  Company Number: SK-MYLANLABS-2025M1006049

PATIENT
  Age: 20 Year
  Sex: Male

DRUGS (24)
  1. OLANZAPINE [Suspect]
     Active Substance: OLANZAPINE
     Indication: Schizophrenia
     Dosage: 12.5 MILLIGRAM, ONCE A DAY [12.5 MILLIGRAM, QD (DAILY)]
     Route: 065
  2. OLANZAPINE [Suspect]
     Active Substance: OLANZAPINE
     Indication: Psychotic disorder
     Dosage: 15 MILLIGRAM, ONCE A DAY [15 MILLIGRAM, QD (DAILY)]
     Route: 065
  3. OLANZAPINE [Suspect]
     Active Substance: OLANZAPINE
     Dosage: 20 MILLIGRAM, ONCE A DAY [20 MILLIGRAM, QD (DAILY)]
     Route: 065
  4. ARIPIPRAZOLE [Suspect]
     Active Substance: ARIPIPRAZOLE
     Indication: Schizophrenia
     Dosage: 5 MILLIGRAM, QD (DAILY)
     Route: 065
  5. ARIPIPRAZOLE [Suspect]
     Active Substance: ARIPIPRAZOLE
     Indication: Psychotic disorder
     Dosage: 15 MILLIGRAM, ONCE A DAY [15 MILLIGRAM, QD (DAILY)]
     Route: 065
  6. ARIPIPRAZOLE [Suspect]
     Active Substance: ARIPIPRAZOLE
     Dosage: 30 MILLIGRAM, ONCE A DAY [30 MILLIGRAM, QD (DAILY)]
     Route: 065
  7. SERTRALINE [Suspect]
     Active Substance: SERTRALINE HYDROCHLORIDE
     Indication: Depression
     Dosage: 50 MILLIGRAM, ONCE A DAY [50 MILLIGRAM, QD (DAILY)]
     Route: 065
  8. SERTRALINE [Suspect]
     Active Substance: SERTRALINE HYDROCHLORIDE
     Indication: Psychotic disorder
     Dosage: 100 MILLIGRAM, ONCE A DAY [100 MILLIGRAM, QD (DAILY)]
     Route: 065
  9. QUETIAPINE [Suspect]
     Active Substance: QUETIAPINE
     Indication: Schizophrenia
     Dosage: 50 MILLIGRAM, ONCE A DAY [50 MILLIGRAM, QD (DAILY)]
     Route: 065
  10. QUETIAPINE [Suspect]
     Active Substance: QUETIAPINE
     Indication: Psychotic disorder
  11. CARBAMAZEPINE [Suspect]
     Active Substance: CARBAMAZEPINE
     Indication: Schizophrenia
     Dosage: 300 MILLIGRAM, ONCE A DAY [300 MILLIGRAM, QD]
     Route: 065
  12. CARBAMAZEPINE [Suspect]
     Active Substance: CARBAMAZEPINE
     Dosage: 150 MILLIGRAM, ONCE A DAY [150 MILLIGRAM, QD (DAILY)]
     Route: 065
  13. VALPROATE SODIUM [Suspect]
     Active Substance: VALPROATE SODIUM
     Indication: Schizophrenia
     Dosage: 1000 MILLIGRAM, ONCE A DAY [1000 MILLIGRAM, QD (DAILY)]
     Route: 065
  14. VALPROATE SODIUM [Suspect]
     Active Substance: VALPROATE SODIUM
     Indication: Psychotic disorder
     Dosage: 1250 MILLIGRAM, ONCE A DAY [1250 MILLIGRAM, QD (DAILY)]
     Route: 065
  15. CARIPRAZINE [Suspect]
     Active Substance: CARIPRAZINE
     Indication: Schizophrenia
     Dosage: 4.5 MILLIGRAM, ONCE A DAY [4.5 MILLIGRAM, QD (DAILY)]
     Route: 065
  16. CARIPRAZINE [Suspect]
     Active Substance: CARIPRAZINE
     Indication: Psychotic disorder
  17. PALIPERIDONE [Suspect]
     Active Substance: PALIPERIDONE
     Indication: Schizophrenia
     Dosage: 12 MILLIGRAM, ONCE A DAY [12 MILLIGRAM, QD (DAILY)]
     Route: 065
  18. PALIPERIDONE [Suspect]
     Active Substance: PALIPERIDONE
     Indication: Psychotic disorder
  19. LITHIUM CARBONATE [Suspect]
     Active Substance: LITHIUM CARBONATE
     Indication: Depression
     Dosage: 900 MILLIGRAM, ONCE A DAY [900 MILLIGRAM, QD (DAILY)]
     Route: 065
  20. LITHIUM CARBONATE [Suspect]
     Active Substance: LITHIUM CARBONATE
     Indication: Psychotic disorder
  21. HALOPERIDOL [Suspect]
     Active Substance: HALOPERIDOL
     Indication: Schizophrenia
     Route: 042
  22. GINKGO [Suspect]
     Active Substance: GINKGO
     Indication: Psychotic disorder
     Route: 065
  23. PIRACETAM [Suspect]
     Active Substance: PIRACETAM
     Indication: Psychotic disorder
     Route: 065
  24. VITAMIN B [Suspect]
     Active Substance: VITAMIN B
     Indication: Psychotic disorder
     Route: 065

REACTIONS (6)
  - Drug ineffective [Recovered/Resolved]
  - Drug resistance [Unknown]
  - Schizophrenia [Recovering/Resolving]
  - Treatment noncompliance [Recovered/Resolved]
  - Sedation [Unknown]
  - Fatigue [Recovered/Resolved]
